FAERS Safety Report 22009239 (Version 3)
Quarter: 2023Q1

REPORT INFORMATION
  Report Type: Other
  Country: BR (occurrence: None)
  Receive Date: 20230220
  Receipt Date: 20230320
  Transmission Date: 20230418
  Serious: Yes (Other)
  Sender: FDA-Public Use
  Company Number: BR-ROCHE-3247006

PATIENT
  Age: 17 Year
  Sex: Female
  Weight: 75 kg

DRUGS (3)
  1. ACTEMRA [Suspect]
     Active Substance: TOCILIZUMAB
     Indication: Juvenile idiopathic arthritis
     Dosage: MOST RECENT ADMINISTRATION DATE OCCURRED IN DEC-2022.
     Route: 042
     Dates: start: 200712
  2. ALPRAZOLAM [Concomitant]
     Active Substance: ALPRAZOLAM
  3. TRAZODONE [Concomitant]
     Active Substance: TRAZODONE HYDROCHLORIDE

REACTIONS (11)
  - Bipolar disorder [Unknown]
  - Borderline personality disorder [Unknown]
  - Malaise [Recovered/Resolved]
  - Cough [Recovered/Resolved]
  - Joint stiffness [Not Recovered/Not Resolved]
  - Feeling hot [Not Recovered/Not Resolved]
  - Musculoskeletal stiffness [Not Recovered/Not Resolved]
  - Ill-defined disorder [Not Recovered/Not Resolved]
  - Pain [Not Recovered/Not Resolved]
  - Pain in extremity [Unknown]
  - Neck pain [Unknown]

NARRATIVE: CASE EVENT DATE: 20221101
